FAERS Safety Report 4632775-0 (Version None)
Quarter: 2005Q2

REPORT INFORMATION
  Report Type: 
  Country: None (occurrence: None)
  Receive Date: 20050412
  Receipt Date: 20050331
  Transmission Date: 20051028
  Serious: Yes (Other)
  Sender: FDA-Public Use
  Company Number: 200512657US

PATIENT
  Sex: Female

DRUGS (4)
  1. ALLEGRA [Suspect]
     Indication: COUGH
     Route: 048
     Dates: start: 20030501, end: 20050301
  2. ALLEGRA [Suspect]
     Indication: FUNGAL INFECTION
     Route: 048
     Dates: start: 20030501, end: 20050301
  3. ALLEGRA [Suspect]
     Indication: POSTNASAL DRIP
     Route: 048
     Dates: start: 20030501, end: 20050301
  4. IBUPROFEN [Concomitant]
     Dosage: DOSE: UNK

REACTIONS (11)
  - BACK INJURY [None]
  - COUGH [None]
  - DEPRESSION [None]
  - HYPOAESTHESIA [None]
  - INTERVERTEBRAL DISC PROTRUSION [None]
  - OVARIAN CYST RUPTURED [None]
  - PARAESTHESIA [None]
  - RHINORRHOEA [None]
  - SINUSITIS [None]
  - SPONDYLITIS [None]
  - SWELLING FACE [None]
